FAERS Safety Report 4388215-2 (Version None)
Quarter: 2004Q2

REPORT INFORMATION
  Report Type: 
  Country: None (occurrence: None)
  Receive Date: 20040625
  Receipt Date: 20040615
  Transmission Date: 20050107
  Serious: Yes (Hospitalization)
  Sender: FDA-Public Use
  Company Number: 2004040217

PATIENT
  Age: 55 Year
  Sex: Female

DRUGS (2)
  1. ZOLOFT [Suspect]
     Indication: MIGRAINE
  2. RIZATRIPTAN BENZOATE (RIZATRIPTAN BENZOATE) [Suspect]
     Indication: MIGRAINE

REACTIONS (6)
  - APHASIA [None]
  - DRUG INEFFECTIVE [None]
  - DRUG INTERACTION [None]
  - LOSS OF CONSCIOUSNESS [None]
  - MIGRAINE [None]
  - SEROTONIN SYNDROME [None]
